FAERS Safety Report 15601378 (Version 1)
Quarter: 2018Q4

REPORT INFORMATION
  Report Type: Report from Study
  Country: CA (occurrence: CA)
  Receive Date: 20181109
  Receipt Date: 20181109
  Transmission Date: 20190205
  Serious: Yes (Death)
  Sender: FDA-Public Use
  Company Number: CA-MYLANLABS-2018M1083070

PATIENT

DRUGS (2)
  1. CIDOFOVIR. [Suspect]
     Active Substance: CIDOFOVIR
     Indication: CYSTITIS HAEMORRHAGIC
     Dosage: SINGLE DOSE
     Route: 043
  2. CIDOFOVIR. [Suspect]
     Active Substance: CIDOFOVIR
     Indication: BK VIRUS INFECTION

REACTIONS (3)
  - Septic shock [Fatal]
  - Pseudomonal sepsis [Fatal]
  - Bladder pain [Unknown]
